FAERS Safety Report 9897165 (Version 1)
Quarter: 2014Q1

REPORT INFORMATION
  Report Type: Spontaneous
  Country: AU (occurrence: AU)
  Receive Date: 20140214
  Receipt Date: 20140214
  Transmission Date: 20141002
  Serious: Yes (Other)
  Sender: FDA-Public Use
  Company Number: AU-BRISTOL-MYERS SQUIBB COMPANY-20145587

PATIENT
  Age: 63 Year
  Sex: Female

DRUGS (5)
  1. ABATACEPT SUBQ INJECTION 125MG/ML [Suspect]
     Indication: RHEUMATOID ARTHRITIS
     Dosage: STARTED ON :MAY OR JUNE 2013
     Route: 058
     Dates: start: 2013
  2. METHOTREXATE [Concomitant]
  3. PREDNISOLONE [Concomitant]
     Dosage: 5 DAYS 50MG/DAY THEN 10MG/DAY THEN 5MG/DAY
  4. HYDROXYCHLOROQUINE [Concomitant]
  5. BACTRIM [Concomitant]
     Indication: PROPHYLAXIS
     Route: 042

REACTIONS (1)
  - Ankle fracture [Unknown]
